FAERS Safety Report 7397716-4 (Version None)
Quarter: 2011Q2

REPORT INFORMATION
  Report Type: 
  Country: None (occurrence: None)
  Receive Date: 20110406
  Receipt Date: 20110406
  Transmission Date: 20111010
  Serious: Yes (Hospitalization, Other)
  Sender: FDA-Public Use
  Company Number: JP-PFIZER INC-2011064919

PATIENT
  Age: 68 Year
  Sex: Female

DRUGS (1)
  1. LYRICA [Suspect]
     Dosage: UNK
     Route: 048
     Dates: start: 20110201, end: 20110308

REACTIONS (3)
  - BLOOD UREA INCREASED [None]
  - BLOOD CREATININE INCREASED [None]
  - BLOOD CALCIUM INCREASED [None]
